FAERS Safety Report 20813857 (Version 1)
Quarter: 2022Q2

REPORT INFORMATION
  Report Type: Spontaneous
  Country: CN (occurrence: CN)
  Receive Date: 20220511
  Receipt Date: 20220511
  Transmission Date: 20220721
  Serious: Yes (Other)
  Sender: FDA-Public Use
  Company Number: CN-PFIZER INC-202200630343

PATIENT
  Age: 58 Year
  Sex: Male

DRUGS (5)
  1. ATORVASTATIN CALCIUM [Interacting]
     Active Substance: ATORVASTATIN CALCIUM
     Indication: Lipids abnormal
     Dosage: 40 MG, 1X/DAY
     Route: 048
     Dates: start: 20220327, end: 20220413
  2. ATORVASTATIN CALCIUM [Interacting]
     Active Substance: ATORVASTATIN CALCIUM
     Indication: Plaque shift
  3. CEFOPERAZONE SODIUM\SULBACTAM SODIUM [Interacting]
     Active Substance: CEFOPERAZONE SODIUM\SULBACTAM SODIUM
     Indication: Anti-infective therapy
     Dosage: 2 G, 3X/DAY
     Route: 041
     Dates: start: 20220411, end: 20220420
  4. NIMODIPINE [Interacting]
     Active Substance: NIMODIPINE
     Indication: Cerebral haemorrhage
     Dosage: 20 MG, 1X/DAY (VIA PUMP INJECTION)
  5. PROPOFOL [Interacting]
     Active Substance: PROPOFOL
     Indication: Analgesic therapy
     Dosage: 1 G, 1X/DAY
     Route: 041
     Dates: start: 20220325, end: 20220422

REACTIONS (3)
  - Drug interaction [Not Recovered/Not Resolved]
  - Hepatic enzyme increased [Not Recovered/Not Resolved]
  - Off label use [Unknown]

NARRATIVE: CASE EVENT DATE: 20220101
